FAERS Safety Report 7607399-3 (Version None)
Quarter: 2011Q3

REPORT INFORMATION
  Report Type: 
  Country: None (occurrence: None)
  Receive Date: 20110713
  Receipt Date: 20110629
  Transmission Date: 20111222
  Serious: Yes (Life-Threatening, Hospitalization)
  Sender: FDA-Public Use
  Company Number: US-TYCO HEALTHCARE/MALLINCKRODT-T201101324

PATIENT
  Age: 55 Year
  Sex: Male

DRUGS (11)
  1. CLONAZEPAM [Concomitant]
     Dosage: 0.5 MG QHS
  2. HYDROCHLOROTHIAZIDE [Concomitant]
     Dosage: 25 MG, QD
  3. INSULIN GLARGINE [Concomitant]
     Dosage: 50 UNITS QHS
  4. LISINOPRIL [Concomitant]
     Dosage: 5 MG, QD
  5. SPIRONOLACTONE [Concomitant]
     Dosage: 25 MG, QD
  6. OXYCODONE HCL [Suspect]
     Dosage: 80 MG, QD
  7. ATAZANAVIR [Suspect]
     Indication: HIV INFECTION
     Dosage: 400 MG, QD
  8. OXYCODONE HCL [Suspect]
     Indication: BACK PAIN
     Dosage: 160 MG, QD
  9. LAMIVUDINE [Concomitant]
     Indication: HIV INFECTION
     Dosage: 150 MG, QD
  10. ZIDOVUDINE [Concomitant]
     Indication: HIV INFECTION
     Dosage: 300 MG, QD
  11. LABETALOL HCL [Concomitant]
     Dosage: 200 MG, BID

REACTIONS (3)
  - TORSADE DE POINTES [None]
  - DRUG INTERACTION [None]
  - VENTRICULAR FIBRILLATION [None]
